FAERS Safety Report 12177766 (Version 1)
Quarter: 2016Q1

REPORT INFORMATION
  Report Type: Spontaneous
  Country: FR (occurrence: FR)
  Receive Date: 20160315
  Receipt Date: 20160315
  Transmission Date: 20160526
  Serious: Yes (Disabling)
  Sender: FDA-Public Use
  Company Number: FR-009507513-1603FRA005932

PATIENT
  Sex: Male

DRUGS (7)
  1. COVERAM [Concomitant]
     Active Substance: AMLODIPINE\PERINDOPRIL
     Dosage: UNK
  2. ZOCOR [Suspect]
     Active Substance: SIMVASTATIN
     Dosage: 40 MG, ONCE PER DAY
     Route: 048
     Dates: start: 2006, end: 20160309
  3. LANTUS [Concomitant]
     Active Substance: INSULIN GLARGINE
  4. LOGROTON [Concomitant]
  5. ZOCOR [Suspect]
     Active Substance: SIMVASTATIN
     Dosage: 20 MG, ONCE PER DAY
     Route: 048
     Dates: start: 20160309
  6. HUMALOG [Concomitant]
     Active Substance: INSULIN LISPRO
  7. ALDACTONE [Concomitant]
     Active Substance: SPIRONOLACTONE
     Indication: HYPERTENSION

REACTIONS (7)
  - Neuropathy peripheral [Unknown]
  - Abasia [Not Recovered/Not Resolved]
  - Tendonitis [Unknown]
  - Pain in extremity [Unknown]
  - Headache [Unknown]
  - Myalgia [Unknown]
  - Muscular weakness [Unknown]

NARRATIVE: CASE EVENT DATE: 2015
